FAERS Safety Report 5828079-0 (Version None)
Quarter: 2008Q3

REPORT INFORMATION
  Report Type: 
  Country: None (occurrence: None)
  Receive Date: 20080730
  Receipt Date: 20070822
  Transmission Date: 20090109
  Serious: No
  Sender: FDA-Public Use
  Company Number: A0674720A

PATIENT
  Age: 10 Month
  Sex: Female

DRUGS (4)
  1. ZANTAC [Suspect]
     Indication: VOMITING
     Dosage: .6ML THREE TIMES PER DAY
     Route: 048
     Dates: start: 20070501
  2. CORTEF [Concomitant]
  3. FLORINEF [Concomitant]
  4. SODIUM CHLORIDE 0.9% [Concomitant]

REACTIONS (2)
  - GROWTH RETARDATION [None]
  - VOMITING [None]
